FAERS Safety Report 25235098 (Version 2)
Quarter: 2025Q2

REPORT INFORMATION
  Report Type: Spontaneous
  Country: US (occurrence: US)
  Receive Date: 20250424
  Receipt Date: 20250509
  Transmission Date: 20250717
  Serious: Yes (Life-Threatening, Hospitalization)
  Sender: TEVA
  Company Number: US-TEVA-VS-3324221

PATIENT
  Age: 23 Year
  Sex: Male

DRUGS (1)
  1. DILTIAZEM [Suspect]
     Active Substance: DILTIAZEM
     Indication: Intentional overdose
     Route: 048

REACTIONS (9)
  - Intentional overdose [Unknown]
  - Acute kidney injury [Recovering/Resolving]
  - Lactic acidosis [Recovering/Resolving]
  - Vomiting [Recovering/Resolving]
  - Atrioventricular block [Recovered/Resolved]
  - Shock [Recovering/Resolving]
  - Nausea [Recovering/Resolving]
  - Atrioventricular block second degree [Recovered/Resolved]
  - Hyperglycaemia [Recovering/Resolving]
